FAERS Safety Report 20411924 (Version 1)
Quarter: 2022Q1

REPORT INFORMATION
  Report Type: Spontaneous
  Country: US (occurrence: US)
  Receive Date: 20220201
  Receipt Date: 20220201
  Transmission Date: 20220423
  Serious: No
  Sender: FDA-Public Use
  Company Number: US-ABBVIE-21K-163-4124282-00

PATIENT
  Sex: Male

DRUGS (12)
  1. LUPRON DEPOT [Suspect]
     Active Substance: LEUPROLIDE ACETATE
     Indication: Product used for unknown indication
     Route: 065
     Dates: start: 20161227, end: 20170124
  2. LUPRON DEPOT [Suspect]
     Active Substance: LEUPROLIDE ACETATE
     Route: 065
     Dates: end: 202104
  3. RELUGOLIX [Concomitant]
     Active Substance: RELUGOLIX
     Indication: Product used for unknown indication
     Dates: start: 20210408
  4. DOCETAXEL [Concomitant]
     Active Substance: DOCETAXEL
     Indication: Product used for unknown indication
     Dates: start: 20170131, end: 2017
  5. DOCETAXEL [Concomitant]
     Active Substance: DOCETAXEL
     Dates: start: 20170221, end: 2017
  6. DOCETAXEL [Concomitant]
     Active Substance: DOCETAXEL
     Dates: start: 20170314, end: 2017
  7. DOCETAXEL [Concomitant]
     Active Substance: DOCETAXEL
     Dates: start: 20170404, end: 201704
  8. DOCETAXEL [Concomitant]
     Active Substance: DOCETAXEL
     Dates: start: 20210425, end: 2021
  9. DOCETAXEL [Concomitant]
     Active Substance: DOCETAXEL
     Dates: start: 20170516
  10. DOCETAXEL [Concomitant]
     Active Substance: DOCETAXEL
     Dates: start: 20210425
  11. ERLEADA [Concomitant]
     Active Substance: APALUTAMIDE
     Indication: Product used for unknown indication
  12. ABIRATERONE ACETATE;PREDNISOLONE [Concomitant]
     Indication: Product used for unknown indication
     Dates: start: 20200526, end: 20210707

REACTIONS (1)
  - Pain [Unknown]
